FAERS Safety Report 5777007-5 (Version None)
Quarter: 2008Q2

REPORT INFORMATION
  Report Type: 
  Country: None (occurrence: None)
  Receive Date: 20080618
  Receipt Date: 20080609
  Transmission Date: 20081010
  Serious: Yes (Death)
  Sender: FDA-Public Use
  Company Number: JP-JNJFOC-20080602750

PATIENT
  Sex: Female
  Weight: 40 kg

DRUGS (20)
  1. REMICADE [Suspect]
     Route: 042
  2. REMICADE [Suspect]
     Route: 042
  3. REMICADE [Suspect]
     Route: 042
  4. REMICADE [Suspect]
     Route: 042
  5. REMICADE [Suspect]
     Route: 042
  6. REMICADE [Suspect]
     Indication: RHEUMATOID ARTHRITIS
     Route: 042
  7. RHEUMATREX [Concomitant]
     Indication: RHEUMATOID ARTHRITIS
     Route: 048
  8. PREDNISOLONE [Concomitant]
     Route: 048
  9. HYPEN [Concomitant]
     Indication: RHEUMATOID ARTHRITIS
     Route: 048
  10. BUFFERIN [Concomitant]
     Indication: RHEUMATOID ARTHRITIS
     Route: 048
  11. VOLTAREN [Concomitant]
     Indication: RHEUMATOID ARTHRITIS
  12. BIOFERMIN [Concomitant]
     Route: 048
  13. PL [Concomitant]
     Route: 048
  14. DASEN [Concomitant]
     Route: 048
  15. BONALON [Concomitant]
     Route: 048
  16. FERROMIA [Concomitant]
     Route: 048
  17. LIPITOR [Concomitant]
     Route: 048
  18. MUCOSTA [Concomitant]
     Route: 048
  19. MARZULENE S [Concomitant]
     Route: 048
  20. ULCERLMIN [Concomitant]
     Route: 048

REACTIONS (1)
  - DEATH [None]
